FAERS Safety Report 4842032-5 (Version None)
Quarter: 2005Q4

REPORT INFORMATION
  Report Type: 
  Country: None (occurrence: None)
  Receive Date: 20051130
  Receipt Date: 20051118
  Transmission Date: 20060501
  Serious: Yes (Hospitalization, Other)
  Sender: FDA-Public Use
  Company Number: US-JNJFOC-20040703524

PATIENT
  Sex: Female

DRUGS (7)
  1. REMINYL [Suspect]
     Route: 048
  2. AMARYL [Suspect]
     Indication: DRUG USE FOR UNKNOWN INDICATION
  3. NAMENDA [Concomitant]
  4. VERAPAMIL [Concomitant]
     Indication: HYPERTENSION
  5. HYDROCHLOROTHIAZIDE [Concomitant]
     Indication: HYPERTENSION
  6. VIOXX [Concomitant]
  7. ASPIRIN [Concomitant]

REACTIONS (4)
  - HYPOGLYCAEMIA [None]
  - MEDICATION ERROR [None]
  - URINARY TRACT INFECTION [None]
  - WRONG DRUG ADMINISTERED [None]
